FAERS Safety Report 8837356 (Version 1)
Quarter: 2012Q4

REPORT INFORMATION
  Report Type: 
  Country: US (occurrence: US)
  Receive Date: 20121012
  Receipt Date: 20121012
  Transmission Date: 20130627
  Serious: Yes (Other)
  Sender: FDA-Public Use
  Company Number: US-MYLANLABS-2012S1020856

PATIENT
  Age: 61 Year
  Sex: Female

DRUGS (10)
  1. CLOZAPINE TABLETS [Suspect]
     Route: 048
  2. TRAZODONE [Concomitant]
  3. LEXAPRO [Concomitant]
  4. FLEXERIL [Concomitant]
  5. VICODIN [Concomitant]
  6. DIAZEPAM [Concomitant]
  7. LAMICTAL [Concomitant]
  8. CLONAZEPAM [Concomitant]
  9. OXYBUTYNIN [Concomitant]
  10. ADVAIR [Concomitant]

REACTIONS (1)
  - Lung neoplasm malignant [Not Recovered/Not Resolved]
